FAERS Safety Report 6895034-1 (Version None)
Quarter: 2010Q3

REPORT INFORMATION
  Report Type: 
  Country: None (occurrence: None)
  Receive Date: 20100802
  Receipt Date: 20100719
  Transmission Date: 20110219
  Serious: Yes (Hospitalization, Other)
  Sender: FDA-Public Use
  Company Number: US-ELI_LILLY_AND_COMPANY-US201007004363

PATIENT
  Age: 53 Year
  Sex: Male

DRUGS (7)
  1. ZYPREXA [Suspect]
     Indication: BIPOLAR DISORDER
     Dosage: 20 MG, DAILY (1/D)
     Route: 065
     Dates: start: 20050201, end: 20080101
  2. ZYPREXA ZYDIS [Suspect]
     Indication: BIPOLAR DISORDER
     Dosage: 20 MG, DAILY (1/D)
     Route: 065
     Dates: start: 20050201, end: 20080101
  3. ZYPREXA ZYDIS [Suspect]
     Dosage: 30 MG, DAILY (1/D)
     Route: 065
  4. HALDOL [Concomitant]
     Dosage: UNK, UNKNOWN
     Route: 065
  5. RISPERDAL [Concomitant]
     Dosage: UNK, UNKNOWN
     Route: 065
  6. DEPAKOTE [Concomitant]
     Dosage: 1500 MG, DAILY (1/D)
     Route: 065
  7. ACCUTANE [Concomitant]
     Dosage: UNK, UNKNOWN
     Route: 065

REACTIONS (6)
  - DELUSION [None]
  - HOSPITALISATION [None]
  - METABOLIC DISORDER [None]
  - OVERDOSE [None]
  - SEBORRHOEIC DERMATITIS [None]
  - WEIGHT INCREASED [None]
